FAERS Safety Report 6357583-4 (Version None)
Quarter: 2009Q3

REPORT INFORMATION
  Report Type: 
  Country: None (occurrence: None)
  Receive Date: 20090916
  Receipt Date: 20090907
  Transmission Date: 20100115
  Serious: Yes (Hospitalization, Other)
  Sender: FDA-Public Use
  Company Number: PHHY2009AR37908

PATIENT
  Age: 54 Year
  Sex: Male

DRUGS (1)
  1. DIOVAN [Suspect]
     Indication: HYPERTENSION
     Dosage: 1 DF (160 MG) DAILY
     Dates: start: 20070823

REACTIONS (2)
  - COLON NEOPLASM [None]
  - COLON OPERATION [None]
